FAERS Safety Report 5821273-4 (Version None)
Quarter: 2008Q3

REPORT INFORMATION
  Report Type: 
  Country: None (occurrence: None)
  Receive Date: 20080722
  Receipt Date: 20080722
  Transmission Date: 20090109
  Serious: Yes (Other)
  Sender: FDA-Public Use
  Company Number: None

PATIENT
  Sex: Female

DRUGS (2)
  1. OPTIRAY 320 [Suspect]
     Indication: COMPUTERISED TOMOGRAM
  2. OPTIRAY 320 [Suspect]
     Indication: UROGRAM

REACTIONS (1)
  - OROPHARYNGEAL PAIN [None]
